FAERS Safety Report 15425012 (Version 1)
Quarter: 2018Q3

REPORT INFORMATION
  Report Type: Report from Study
  Country: IN (occurrence: IN)
  Receive Date: 20180925
  Receipt Date: 20180925
  Transmission Date: 20181010
  Serious: Yes (Other)
  Sender: FDA-Public Use
  Company Number: IN-BAYER-2018-176449

PATIENT
  Age: 54 Year
  Sex: Male

DRUGS (4)
  1. NEXAVAR [Suspect]
     Active Substance: SORAFENIB
     Dosage: DAILY DOSE, 800 MG
     Route: 048
     Dates: start: 20180806
  2. URSACOL [Concomitant]
     Active Substance: URSODIOL
  3. PANTOCID [Concomitant]
  4. CARDINA [Concomitant]

REACTIONS (3)
  - Metastases to lung [None]
  - Hepatic failure [None]
  - Hepatic infection [None]
